FAERS Safety Report 5318264-9 (Version None)
Quarter: 2007Q2

REPORT INFORMATION
  Report Type: 
  Country: None (occurrence: None)
  Receive Date: 20070507
  Receipt Date: 20070424
  Transmission Date: 20071010
  Serious: Yes (Other)
  Sender: FDA-Public Use
  Company Number: PHBS2007BR06462

PATIENT
  Age: 24 Year
  Sex: Male

DRUGS (1)
  1. TEGRETOL [Suspect]
     Route: 048

REACTIONS (7)
  - ALOPECIA [None]
  - ANXIETY [None]
  - ASTIGMATISM [None]
  - CONVULSION [None]
  - DYSPNOEA [None]
  - NERVOUSNESS [None]
  - VISION BLURRED [None]
